FAERS Safety Report 10450760 (Version 1)
Quarter: 2014Q3

REPORT INFORMATION
  Report Type: Other
  Country: FR (occurrence: FR)
  Receive Date: 20140912
  Receipt Date: 20140912
  Transmission Date: 20150326
  Serious: Yes (Hospitalization)
  Sender: FDA-Public Use
  Company Number: FR-MYLAN-2014M1003795

PATIENT

DRUGS (7)
  1. PREVISCAN                          /00261401/ [Suspect]
     Active Substance: PENTOXIFYLLINE
     Dosage: 0.5 DF, QD
     Route: 048
     Dates: start: 20101207, end: 20101209
  2. CALCIUM LEVOFOLINATE [Concomitant]
     Active Substance: LEVOLEUCOVORIN CALCIUM
     Indication: PANCREATIC CARCINOMA
     Dosage: UNK
     Route: 042
     Dates: start: 20101207, end: 20101207
  3. ZOPHREN                            /00955301/ [Suspect]
     Active Substance: ONDANSETRON
     Dosage: 1-2 TABLETS DAILY (1 DF, 1 IN 1 DAY(S)
     Route: 048
     Dates: start: 20101207, end: 20101209
  4. ONDANSETRON HYDROCHLORIDE. [Suspect]
     Active Substance: ONDANSETRON HYDROCHLORIDE
     Dosage: 8 MG, UNK
     Route: 042
     Dates: start: 20101207, end: 20101207
  5. FLUOROURACIL. [Suspect]
     Active Substance: FLUOROURACIL
     Indication: PANCREATIC CARCINOMA
     Dosage: 1 DF, TID
     Route: 042
     Dates: start: 20101207, end: 20101208
  6. ELOXATIN [Suspect]
     Active Substance: OXALIPLATIN
     Indication: PANCREATIC CARCINOMA
     Dosage: 92 MG, UNK
     Route: 042
     Dates: start: 20101207, end: 20101207
  7. DUROGESIC [Suspect]
     Active Substance: FENTANYL
     Dosage: 1 DF, UNK
     Route: 062
     Dates: start: 20101207, end: 20101215

REACTIONS (2)
  - Cerebrovascular accident [Recovered/Resolved with Sequelae]
  - Generalised tonic-clonic seizure [Recovered/Resolved with Sequelae]

NARRATIVE: CASE EVENT DATE: 20101207
